FAERS Safety Report 5416711-5 (Version None)
Quarter: 2007Q3

REPORT INFORMATION
  Report Type: 
  Country: None (occurrence: None)
  Receive Date: 20070816
  Receipt Date: 20070810
  Transmission Date: 20080115
  Serious: Yes (Hospitalization)
  Sender: FDA-Public Use
  Company Number: A0664649A

PATIENT
  Age: 64 Year
  Sex: Male
  Weight: 86.4 kg

DRUGS (3)
  1. AVANDIA [Suspect]
     Indication: DRUG USE FOR UNKNOWN INDICATION
     Dosage: 4MG TWICE PER DAY
     Route: 048
     Dates: start: 20060201, end: 20070601
  2. GLIMEPIRIDE [Concomitant]
     Dosage: 4MG PER DAY
  3. CLOPIDOGREL BISULFATE [Concomitant]
     Dosage: 75MG PER DAY
     Route: 048
     Dates: start: 20070301

REACTIONS (2)
  - CARDIAC DISORDER [None]
  - CORONARY ARTERIAL STENT INSERTION [None]
